FAERS Safety Report 9115450 (Version 1)
Quarter: 2013Q1

REPORT INFORMATION
  Report Type: Spontaneous
  Country: US (occurrence: US)
  Receive Date: 20130225
  Receipt Date: 20130225
  Transmission Date: 20140127
  Serious: No
  Sender: FDA-Public Use
  Company Number: US-ENDO PHARMACEUTICALS INC.-FORT20120097

PATIENT
  Sex: Male

DRUGS (4)
  1. FORTESTA [Suspect]
     Indication: HORMONE REPLACEMENT THERAPY
     Route: 061
     Dates: start: 201204
  2. FORTESTA [Suspect]
     Indication: FATIGUE
     Route: 061
     Dates: start: 201202, end: 201204
  3. INSULIN [Suspect]
     Indication: DIABETES MELLITUS
     Dosage: 40 UNITS
     Route: 065
  4. INSULIN [Suspect]
     Dosage: 35 UNITS
     Route: 065

REACTIONS (4)
  - Blood glucose increased [Unknown]
  - Scrotal disorder [Unknown]
  - Testicular atrophy [Unknown]
  - Drug ineffective [Unknown]
